FAERS Safety Report 8373985-9 (Version None)
Quarter: 2012Q2

REPORT INFORMATION
  Report Type: 
  Country: None (occurrence: None)
  Receive Date: 20120521
  Receipt Date: 20120515
  Transmission Date: 20120825
  Serious: Yes (Life-Threatening)
  Sender: FDA-Public Use
  Company Number: JP-ASTRAZENECA-2012SE22749

PATIENT
  Age: 60 Year
  Sex: Female
  Weight: 54 kg

DRUGS (10)
  1. VOLTAREN [Concomitant]
     Route: 065
  2. FAMOTIDINE [Concomitant]
     Route: 065
  3. REMERON [Concomitant]
     Indication: DEPRESSION
     Route: 048
  4. ACETAMINOPHEN [Concomitant]
     Route: 065
  5. FAMOTIDINE [Concomitant]
     Route: 065
  6. ARIMIDEX [Suspect]
     Indication: BREAST CANCER
     Route: 048
     Dates: start: 20110215, end: 20120116
  7. RINGEREAZE [Concomitant]
     Indication: DEPRESSION
     Route: 048
  8. TOLEDOMIN [Concomitant]
     Indication: DEPRESSION
     Route: 048
  9. REBAMIPIDE [Concomitant]
     Route: 065
  10. ACETAMINOPHEN [Concomitant]
     Route: 065

REACTIONS (1)
  - ACUTE HEPATIC FAILURE [None]
